FAERS Safety Report 9859674 (Version 2)
Quarter: 2014Q1

REPORT INFORMATION
  Report Type: Spontaneous
  Country: US (occurrence: US)
  Receive Date: 20140131
  Receipt Date: 20140228
  Transmission Date: 20141002
  Serious: Yes (Death)
  Sender: FDA-Public Use
  Company Number: US-GLAXOSMITHKLINE-A1058766A

PATIENT
  Age: 69 Year
  Sex: Female
  Weight: 61 kg

DRUGS (5)
  1. VOTRIENT [Suspect]
     Indication: PRODUCT USED FOR UNKNOWN INDICATION
     Route: 048
     Dates: start: 201309, end: 20131115
  2. DOCUSATE [Concomitant]
  3. LEVOTHYROXINE [Concomitant]
  4. PROTONIX [Concomitant]
  5. ZOFRAN [Concomitant]

REACTIONS (9)
  - Sudden death [Fatal]
  - Dysgeusia [Recovering/Resolving]
  - Fatigue [Not Recovered/Not Resolved]
  - Asthenia [Recovered/Resolved]
  - Nausea [Recovered/Resolved]
  - Abdominal pain [Recovered/Resolved]
  - Liver disorder [Unknown]
  - Laboratory test abnormal [Unknown]
  - Decreased appetite [Unknown]
